FAERS Safety Report 4706339-4 (Version None)
Quarter: 2005Q3

REPORT INFORMATION
  Report Type: 
  Country: None (occurrence: None)
  Receive Date: 20050705
  Receipt Date: 20050304
  Transmission Date: 20060218
  Serious: Yes (Hospitalization)
  Sender: FDA-Public Use
  Company Number: US-BRISTOL-MYERS SQUIBB COMPANY-12886792

PATIENT
  Age: 56 Year
  Sex: Female
  Weight: 85 kg

DRUGS (10)
  1. CETUXIMAB [Suspect]
     Indication: COLORECTAL CANCER METASTATIC
     Dosage: 1ST CETUXIMAB INFUSION ADMINISTERED ON 02-FEB-2005.
     Route: 042
     Dates: start: 20050223, end: 20050223
  2. FLUOROURACIL [Suspect]
     Indication: COLORECTAL CANCER METASTATIC
     Dosage: 1ST FLUOROURACIL INFUSION ADMINISTERED ON 02-FEB-2005.
     Route: 042
     Dates: start: 20050216, end: 20050216
  3. LEUCOVORIN CALCIUM [Suspect]
     Indication: COLORECTAL CANCER METASTATIC
     Dosage: 1ST LEUCOVORIN INFUSION ADMINISTERED ON 02-FEB-2005.
     Route: 042
     Dates: start: 20050216, end: 20050216
  4. OXALIPLATIN [Suspect]
     Indication: COLORECTAL CANCER METASTATIC
     Dosage: 1ST OXALIPLATIN INFUSION ADMINISTERED ON 02-FEB-2005.
     Route: 042
     Dates: start: 20050216, end: 20050216
  5. COUMADIN [Suspect]
     Indication: PULMONARY EMBOLISM
     Route: 048
  6. METRONIDAZOLE [Concomitant]
     Indication: ROSACEA
     Dosage: DOSE UNKNOWN.
     Route: 061
  7. HYDROCODONE [Concomitant]
     Indication: PAIN
     Route: 048
  8. ACETAMINOPHEN [Concomitant]
     Indication: PAIN
     Route: 048
  9. CLINDAMYCIN [Concomitant]
     Indication: DERMATITIS
     Route: 061
  10. DOXYCYCLINE [Concomitant]
     Indication: DERMATITIS
     Route: 061

REACTIONS (3)
  - COLONIC HAEMORRHAGE [None]
  - EPISTAXIS [None]
  - PROTHROMBIN TIME PROLONGED [None]
